FAERS Safety Report 23451079 (Version 1)
Quarter: 2024Q1

REPORT INFORMATION
  Report Type: Spontaneous
  Country: CN (occurrence: CN)
  Receive Date: 20240129
  Receipt Date: 20240129
  Transmission Date: 20240409
  Serious: Yes (Other)
  Sender: FDA-Public Use
  Company Number: CN-002147023-NVSC2024CN017806

PATIENT
  Sex: Female

DRUGS (2)
  1. LETROZOLE [Suspect]
     Active Substance: LETROZOLE
     Indication: Polycystic ovarian syndrome
     Dosage: 2.5 MG ON THE 3RD TO 5TH DAY OF THE MENSTRUAL PERIOD, ONCE PER DAY FOR 5 DAYS AS A COURSE OF TREATME
     Route: 048
  2. LETROZOLE [Suspect]
     Active Substance: LETROZOLE
     Indication: Infertility

REACTIONS (2)
  - Ovarian hyperstimulation syndrome [Unknown]
  - Off label use [Unknown]
